FAERS Safety Report 7081301-8 (Version None)
Quarter: 2010Q4

REPORT INFORMATION
  Report Type: 
  Country: None (occurrence: None)
  Receive Date: 20101025
  Receipt Date: 20101011
  Transmission Date: 20110411
  Serious: Yes (Other)
  Sender: FDA-Public Use
  Company Number: 2010-3485

PATIENT
  Age: 45 Year
  Sex: Male

DRUGS (1)
  1. SOMATULINE L.P. (LANREOTIDE AUTOGEL) (LANREOTIDE) (LANREOTIDE ACETATE) [Suspect]
     Indication: ACROMEGALY
     Dosage: 120 MG (120 MG, 1 IN 6 WK, SUBCUTANEOUS
     Route: 058
     Dates: start: 20030501

REACTIONS (2)
  - HEPATOBILIARY DISEASE [None]
  - MICROLITHIASIS [None]
